FAERS Safety Report 25925391 (Version 2)
Quarter: 2025Q4

REPORT INFORMATION
  Report Type: Report from Study
  Country: US (occurrence: US)
  Receive Date: 20251015
  Receipt Date: 20251202
  Transmission Date: 20260117
  Serious: No
  Sender: MALLINCKRODT
  Company Number: US-MALLINCKRODT-MNK202506236

PATIENT
  Age: 67 Year
  Sex: Female
  Weight: 211 kg

DRUGS (1)
  1. CORTICOTROPIN [Suspect]
     Active Substance: CORTICOTROPIN
     Indication: Dermatitis
     Dosage: 80 UNITS
     Route: 058
     Dates: start: 20250924

REACTIONS (5)
  - Contusion [Unknown]
  - Injection site erythema [Not Recovered/Not Resolved]
  - Injection site discharge [Unknown]
  - Injection site pruritus [Not Recovered/Not Resolved]
  - Acne [Not Recovered/Not Resolved]

NARRATIVE: CASE EVENT DATE: 20250101
